FAERS Safety Report 4799994-4 (Version None)
Quarter: 2005Q4

REPORT INFORMATION
  Report Type: 
  Country: None (occurrence: None)
  Receive Date: 20051013
  Receipt Date: 20051004
  Transmission Date: 20060501
  Serious: Yes (Hospitalization, Disabling, Other)
  Sender: FDA-Public Use
  Company Number: 2005137367

PATIENT
  Age: 57 Year
  Sex: Male

DRUGS (3)
  1. FRAGMIN [Suspect]
     Indication: EMBOLISM
     Dates: start: 20030423, end: 20030425
  2. ASPIRIN [Concomitant]
  3. WARFARIN SODIUM [Concomitant]

REACTIONS (6)
  - CEREBRAL HAEMORRHAGE [None]
  - COGNITIVE DISORDER [None]
  - CONFUSIONAL STATE [None]
  - EMOTIONAL DISORDER [None]
  - FEELING ABNORMAL [None]
  - SPEECH DISORDER [None]
